FAERS Safety Report 16720064 (Version 1)
Quarter: 2019Q3

REPORT INFORMATION
  Report Type: Spontaneous
  Country: US (occurrence: US)
  Receive Date: 20190820
  Receipt Date: 20190820
  Transmission Date: 20191005
  Serious: No
  Sender: FDA-Public Use
  Company Number: US-MISSION PHARMACAL COMPANY-2073363

PATIENT
  Age: 65 Year
  Sex: Female

DRUGS (1)
  1. THIOLA EC [Suspect]
     Active Substance: TIOPRONIN
     Route: 065
     Dates: start: 20190807

REACTIONS (6)
  - Pyrexia [Recovered/Resolved]
  - Intentional dose omission [Unknown]
  - Pain [Unknown]
  - Erythema [Unknown]
  - Lethargy [Unknown]
  - Rash [Unknown]

NARRATIVE: CASE EVENT DATE: 20190817
